FAERS Safety Report 5648527-9 (Version None)
Quarter: 2008Q1

REPORT INFORMATION
  Report Type: 
  Country: None (occurrence: None)
  Receive Date: 20080131
  Receipt Date: 20071130
  Transmission Date: 20080703
  Serious: No
  Sender: FDA-Public Use
  Company Number: 2005PV002361

PATIENT
  Age: 74 Year
  Sex: Female
  Weight: 97.1 kg

DRUGS (14)
  1. EXENATIDE(EXENATIDE) PEN, DISPOSABLE [Suspect]
     Indication: INSULIN-REQUIRING TYPE 2 DIABETES MELLITUS
     Dosage: SEE IMAGE
     Route: 058
     Dates: start: 20050921, end: 20051018
  2. EXENATIDE(EXENATIDE) PEN, DISPOSABLE [Suspect]
     Indication: INSULIN-REQUIRING TYPE 2 DIABETES MELLITUS
     Dosage: SEE IMAGE
     Route: 058
     Dates: start: 20051018, end: 20060113
  3. EXENATIDE(EXENATIDE) PEN, DISPOSABLE [Suspect]
     Indication: INSULIN-REQUIRING TYPE 2 DIABETES MELLITUS
     Dosage: SEE IMAGE
     Route: 058
     Dates: start: 20060101
  4. EXENATIDE(EXENATIDE) PEN, DISPOSABLE [Suspect]
     Indication: INSULIN-REQUIRING TYPE 2 DIABETES MELLITUS
     Dosage: SEE IMAGE
     Route: 058
     Dates: start: 20060101
  5. EXENATIDE(EXENATIDE) PEN, DISPOSABLE [Suspect]
  6. EXENATIDE(EXENATIDE) PEN, DISPOSABLE [Suspect]
  7. EXENATIDE(EXENATIDE) PEN, DISPOSABLE [Suspect]
  8. NOVOLOG MIX 70/30 (NOVOLOG MIX 70/30) INJECTION [Concomitant]
  9. GLUCOPHAGE [Concomitant]
  10. AMARYL [Concomitant]
  11. NOVOLIN [Concomitant]
  12. INSULIN (INSULIN) [Concomitant]
  13. . [Concomitant]
  14. . [Concomitant]

REACTIONS (12)
  - BLOOD GLUCOSE DECREASED [None]
  - COLD SWEAT [None]
  - DECREASED APPETITE [None]
  - DIARRHOEA [None]
  - DYSPEPSIA [None]
  - FATIGUE [None]
  - FLATULENCE [None]
  - HYPERHIDROSIS [None]
  - NAUSEA [None]
  - SOMNOLENCE [None]
  - TREMOR [None]
  - WEIGHT DECREASED [None]
